FAERS Safety Report 14929445 (Version 2)
Quarter: 2018Q2

REPORT INFORMATION
  Report Type: Spontaneous
  Country: HU (occurrence: HU)
  Receive Date: 20180523
  Receipt Date: 20180604
  Transmission Date: 20180711
  Serious: No
  Sender: FDA-Public Use
  Company Number: HU-009507513-1805HUN007473

PATIENT
  Age: 38 Year
  Sex: Female

DRUGS (6)
  1. FENTANYL. [Suspect]
     Active Substance: FENTANYL
     Indication: GENERAL ANAESTHESIA
     Route: 065
  2. DEXA RATIOPHARM [Suspect]
     Active Substance: DEXAMETHASONE SODIUM PHOSPHATE
     Indication: NEONATAL RESPIRATORY DISTRESS SYNDROME PROPHYLAXIS
     Dosage: 4X6 MG, Q12H
     Route: 065
  3. PROPOFOL. [Suspect]
     Active Substance: PROPOFOL
     Indication: GENERAL ANAESTHESIA
     Route: 065
  4. ATROPINE. [Suspect]
     Active Substance: ATROPINE
     Indication: GENERAL ANAESTHESIA
     Route: 065
  5. STIGMOSAN [Suspect]
     Active Substance: NEOSTIGMINE METHYLSULFATE
     Indication: GENERAL ANAESTHESIA
     Route: 065
  6. ESMERON [Suspect]
     Active Substance: ROCURONIUM BROMIDE
     Indication: GENERAL ANAESTHESIA
     Route: 065

REACTIONS (6)
  - Premature delivery [None]
  - Procedural haemorrhage [None]
  - Maternal exposure during delivery [None]
  - Maternal exposure during pregnancy [Recovered/Resolved]
  - Haemodynamic instability [None]
  - Caesarean section [None]
